FAERS Safety Report 5935622-X (Version None)
Quarter: 2008Q4

REPORT INFORMATION
  Report Type: 
  Country: None (occurrence: None)
  Receive Date: 20081030
  Receipt Date: 20081027
  Transmission Date: 20090506
  Serious: Yes (Other)
  Sender: FDA-Public Use
  Company Number: D0059197A

PATIENT
  Age: 70 Year
  Sex: Female
  Weight: 70 kg

DRUGS (3)
  1. AVANDIA [Suspect]
     Route: 048
     Dates: start: 20030101
  2. GLYBURIDE [Concomitant]
     Dosage: 10.5MG PER DAY
     Route: 065
  3. FLUVASTATIN [Concomitant]
     Dosage: 40MG PER DAY
     Route: 065

REACTIONS (3)
  - CLAVICLE FRACTURE [None]
  - FALL [None]
  - RIB FRACTURE [None]
